FAERS Safety Report 7249490-X (Version None)
Quarter: 2011Q1

REPORT INFORMATION
  Report Type: 
  Country: None (occurrence: None)
  Receive Date: 20110128
  Receipt Date: 20101202
  Transmission Date: 20110831
  Serious: Yes (Hospitalization, Other)
  Sender: FDA-Public Use
  Company Number: US-BAYER-200824911NA

PATIENT
  Sex: Female
  Weight: 52 kg

DRUGS (6)
  1. MACROBID [Concomitant]
     Indication: URINARY TRACT INFECTION
  2. ANAPROX [Concomitant]
     Dosage: UNK
     Dates: start: 20060901
  3. ACETAMINOPHEN [Concomitant]
     Indication: THROMBOSIS
     Route: 048
  4. YAZ [Suspect]
     Indication: ACNE
     Route: 048
     Dates: start: 20080301, end: 20080602
  5. NAPROXEN [Concomitant]
     Dosage: UNK
     Dates: start: 20060501
  6. ASCORBIC ACID [Concomitant]
     Dosage: UNK
     Dates: start: 20080501

REACTIONS (15)
  - UNEVALUABLE EVENT [None]
  - FLANK PAIN [None]
  - URINARY TRACT INFECTION [None]
  - BACK PAIN [None]
  - PELVIC VENOUS THROMBOSIS [None]
  - PULMONARY EMBOLISM [None]
  - PULMONARY THROMBOSIS [None]
  - DEEP VEIN THROMBOSIS [None]
  - DYSPNOEA [None]
  - OEDEMA PERIPHERAL [None]
  - CHEST PAIN [None]
  - MUSCULOSKELETAL PAIN [None]
  - PULMONARY ARTERY THROMBOSIS [None]
  - PAINFUL RESPIRATION [None]
  - ILIAC ARTERY THROMBOSIS [None]
